FAERS Safety Report 10289963 (Version 1)
Quarter: 2014Q3

REPORT INFORMATION
  Report Type: Spontaneous
  Country: US (occurrence: None)
  Receive Date: 20140707
  Receipt Date: 20140707
  Transmission Date: 20150326
  Serious: No
  Sender: FDA-Public Use
  Company Number: None

PATIENT
  Age: 51 Year
  Sex: Male
  Weight: 90.72 kg

DRUGS (1)
  1. DULOXETINE [Suspect]
     Active Substance: DULOXETINE
     Indication: DEPRESSION
     Dosage: 2 CAPS AM AND 1 CAP PM TWICE DAILY TAKEN BY MOUTH
     Route: 048
     Dates: start: 20140330, end: 20140705

REACTIONS (8)
  - Irritability [None]
  - Anxiety [None]
  - Depression [None]
  - Nightmare [None]
  - Product substitution issue [None]
  - Affective disorder [None]
  - Hiccups [None]
  - Sleep disorder [None]

NARRATIVE: CASE EVENT DATE: 20140701
